FAERS Safety Report 11399313 (Version 3)
Quarter: 2015Q3

REPORT INFORMATION
  Report Type: Spontaneous
  Country: DE (occurrence: DE)
  Receive Date: 20150820
  Receipt Date: 20150902
  Transmission Date: 20151125
  Serious: Yes (Other)
  Sender: FDA-Public Use
  Company Number: DE-PFIZER INC-2015278738

PATIENT
  Age: 55 Year
  Sex: Female
  Weight: 60 kg

DRUGS (2)
  1. VIVINOX SLEEP [Suspect]
     Active Substance: DIPHENHYDRAMINE HYDROCHLORIDE
     Indication: SUICIDAL IDEATION
     Dosage: 950 MG (19- 50 MG TABLETS), SINGLE
     Route: 048
     Dates: start: 20150806, end: 20150806
  2. RAMIPRIL. [Suspect]
     Active Substance: RAMIPRIL
     Indication: SUICIDAL IDEATION
     Dosage: 19 TABLETS TO A TOTAL DOSE OF 95 MG
     Route: 048
     Dates: start: 20150806, end: 20150806

REACTIONS (5)
  - Psychotic disorder [Recovered/Resolved]
  - Pyrexia [Recovered/Resolved]
  - Intentional overdose [Recovered/Resolved]
  - Haematoma [Recovered/Resolved]
  - Suicide attempt [Recovered/Resolved]

NARRATIVE: CASE EVENT DATE: 20150806
